FAERS Safety Report 4428033-X (Version None)
Quarter: 2004Q3

REPORT INFORMATION
  Report Type: 
  Country: None (occurrence: None)
  Receive Date: 20040817
  Receipt Date: 20030929
  Transmission Date: 20050211
  Serious: Yes (Other)
  Sender: FDA-Public Use
  Company Number: US-MERCK-0310USA00094

PATIENT
  Age: 29 Year
  Sex: Female
  Weight: 148 kg

DRUGS (11)
  1. [COMPOSITION UNSPECIFIED] [Concomitant]
     Route: 065
  2. MIDRIN [Concomitant]
     Route: 048
     Dates: start: 20010301
  3. KEFLEX [Concomitant]
     Route: 048
     Dates: start: 20010301
  4. TIAZAC [Concomitant]
     Route: 065
  5. HYDRODIURIL [Concomitant]
     Route: 048
  6. ACCURETIC [Concomitant]
     Indication: BLOOD PRESSURE
     Route: 065
  7. PREVACID [Concomitant]
     Indication: GASTRIC DISORDER
     Route: 065
  8. SYNTHROID [Concomitant]
     Route: 065
  9. CLARITIN-D [Concomitant]
     Route: 048
     Dates: start: 20010301
  10. ACCUPRIL [Concomitant]
     Route: 065
  11. VIOXX [Suspect]
     Indication: PAIN
     Route: 048
     Dates: start: 20010301, end: 20030101

REACTIONS (25)
  - ABSCESS [None]
  - ARTHRODESIS [None]
  - BASEDOW'S DISEASE [None]
  - BODY TINEA [None]
  - BRONCHITIS CHRONIC [None]
  - CELLULITIS [None]
  - DEPRESSION [None]
  - DIARRHOEA [None]
  - DYSPHAGIA [None]
  - ESSENTIAL HYPERTENSION [None]
  - FACIAL PALSY [None]
  - GASTROOESOPHAGEAL REFLUX DISEASE [None]
  - HERPES SIMPLEX [None]
  - HERPES SIMPLEX OPHTHALMIC [None]
  - HORDEOLUM [None]
  - INSOMNIA [None]
  - OEDEMA PERIPHERAL [None]
  - OTITIS MEDIA ACUTE [None]
  - PELVIC INFLAMMATORY DISEASE [None]
  - PHARYNGITIS [None]
  - PLEURISY [None]
  - POST PROCEDURAL COMPLICATION [None]
  - THYROIDITIS [None]
  - URINARY TRACT INFECTION [None]
  - WEIGHT INCREASED [None]
